FAERS Safety Report 8600009-8 (Version None)
Quarter: 2012Q3

REPORT INFORMATION
  Report Type: 
  Country: None (occurrence: None)
  Receive Date: 20120816
  Receipt Date: 20120810
  Transmission Date: 20120928
  Serious: Yes (Other)
  Sender: FDA-Public Use
  Company Number: JP-GILEAD-2012-0059770

PATIENT
  Age: 71 Year
  Sex: Female

DRUGS (4)
  1. HEPSERA [Suspect]
     Indication: HEPATIC CIRRHOSIS
     Route: 048
     Dates: start: 20080301
  2. GASTER                             /00706001/ [Concomitant]
     Route: 065
  3. LAMIVUDINE [Suspect]
     Indication: HEPATIC CIRRHOSIS
     Route: 048
  4. LIPITOR [Concomitant]
     Route: 048

REACTIONS (1)
  - OSTEOMALACIA [None]
